FAERS Safety Report 23350505 (Version 3)
Quarter: 2024Q1

REPORT INFORMATION
  Report Type: Spontaneous
  Country: US (occurrence: US)
  Receive Date: 20231229
  Receipt Date: 20240112
  Transmission Date: 20240410
  Serious: No
  Sender: FDA-Public Use
  Company Number: US-OPELLA-2023OHG020774

PATIENT

DRUGS (1)
  1. ICY HOT DRY [Suspect]
     Active Substance: MENTHOL
     Indication: Muscle strain

REACTIONS (3)
  - Eye irritation [Unknown]
  - Product administered at inappropriate site [Unknown]
  - Accidental exposure to product [Unknown]
